FAERS Safety Report 6309421-3 (Version None)
Quarter: 2009Q3

REPORT INFORMATION
  Report Type: 
  Country: None (occurrence: None)
  Receive Date: 20090811
  Receipt Date: 20090523
  Transmission Date: 20100115
  Serious: No
  Sender: FDA-Public Use
  Company Number: 1000006487

PATIENT
  Age: 51 Year
  Sex: Female

DRUGS (8)
  1. SAVELLA [Suspect]
     Indication: FIBROMYALGIA
     Dosage: 12.5 MG (12.5 MG,1 IN 1 D),ORAL; 25 MG (12.5 MG, 2 IN 1 D), ORAL;  50 MG (25 MG, 2 IN 1 D), ORAL
     Route: 048
     Dates: start: 20090515, end: 20090515
  2. SAVELLA [Suspect]
     Indication: FIBROMYALGIA
     Dosage: 12.5 MG (12.5 MG,1 IN 1 D),ORAL; 25 MG (12.5 MG, 2 IN 1 D), ORAL;  50 MG (25 MG, 2 IN 1 D), ORAL
     Route: 048
     Dates: start: 20090516, end: 20090517
  3. SAVELLA [Suspect]
     Indication: FIBROMYALGIA
     Dosage: 12.5 MG (12.5 MG,1 IN 1 D),ORAL; 25 MG (12.5 MG, 2 IN 1 D), ORAL;  50 MG (25 MG, 2 IN 1 D), ORAL
     Route: 048
     Dates: start: 20090518, end: 20090521
  4. SAVELLA [Suspect]
     Indication: FIBROMYALGIA
     Dosage: 100 MG (50 MG, 2 IN 1 D), ORAL
     Route: 048
     Dates: start: 20090522, end: 20090523
  5. TOPAMAX [Concomitant]
  6. DEPAKOTE [Concomitant]
  7. PANTOPRAZOLE SODIUM [Concomitant]
  8. LEVOTHYROXINE SODIUM [Concomitant]

REACTIONS (2)
  - MIGRAINE [None]
  - NAUSEA [None]
